FAERS Safety Report 26033060 (Version 1)
Quarter: 2025Q4

REPORT INFORMATION
  Report Type: Report from Study
  Country: EU (occurrence: EU)
  Receive Date: 20251112
  Receipt Date: 20251112
  Transmission Date: 20260118
  Serious: Yes (Other)
  Sender: ABBVIE
  Company Number: EU-ABBVIE-6539687

PATIENT
  Age: 84 Year
  Sex: Female

DRUGS (2)
  1. CARBIDOPA\LEVODOPA [Suspect]
     Active Substance: CARBIDOPA\LEVODOPA
     Indication: Parkinson^s disease
     Route: 050
     Dates: start: 20241202
  2. CARBIDOPA\LEVODOPA [Suspect]
     Active Substance: CARBIDOPA\LEVODOPA
     Dosage: DOSE INCREASED
     Route: 050

REACTIONS (5)
  - Depressed level of consciousness [Not Recovered/Not Resolved]
  - Malaise [Unknown]
  - On and off phenomenon [Not Recovered/Not Resolved]
  - Dysphagia [Not Recovered/Not Resolved]
  - Therapeutic product effect incomplete [Unknown]
